FAERS Safety Report 13131828 (Version 4)
Quarter: 2017Q4

REPORT INFORMATION
  Report Type: Report from Study
  Country: JP (occurrence: JP)
  Receive Date: 20170119
  Receipt Date: 20171226
  Transmission Date: 20180320
  Serious: Yes (Hospitalization, Other)
  Sender: FDA-Public Use
  Company Number: JP-BRISTOL-MYERS SQUIBB COMPANY-BMS-2017-002376

PATIENT
  Age: 55 Year
  Sex: Male
  Weight: 70.8 kg

DRUGS (1)
  1. NIVOLUMAB [Suspect]
     Active Substance: NIVOLUMAB
     Indication: OESOPHAGEAL CARCINOMA
     Dosage: 240 MG, Q2WK
     Route: 042
     Dates: start: 20161219

REACTIONS (4)
  - Appendicitis [Not Recovered/Not Resolved]
  - Oesophagobronchial fistula [Recovered/Resolved]
  - Tumour haemorrhage [Recovered/Resolved]
  - Cholecystitis [Recovered/Resolved]

NARRATIVE: CASE EVENT DATE: 20170107
